FAERS Safety Report 10540642 (Version 1)
Quarter: 2014Q4

REPORT INFORMATION
  Report Type: Spontaneous
  Country: US (occurrence: None)
  Receive Date: 20141009
  Receipt Date: 20141009
  Transmission Date: 20150529
  Serious: Yes (Hospitalization)
  Sender: FDA-Public Use
  Company Number: 1000049954

PATIENT
  Age: 22 Year
  Sex: Male
  Weight: 84.3 kg

DRUGS (1)
  1. LEXAPRO [Suspect]
     Active Substance: ESCITALOPRAM OXALATE
     Indication: DEPRESSION
     Dates: start: 2009, end: 2009

REACTIONS (6)
  - Mania [None]
  - Blood testosterone decreased [None]
  - Suicidal ideation [None]
  - Crying [None]
  - Sexual dysfunction [None]
  - Depression [None]

NARRATIVE: CASE EVENT DATE: 2009
